FAERS Safety Report 7648708-9 (Version None)
Quarter: 2011Q3

REPORT INFORMATION
  Report Type: 
  Country: None (occurrence: None)
  Receive Date: 20110801
  Receipt Date: 20110722
  Transmission Date: 20111222
  Serious: Yes (Disabling)
  Sender: FDA-Public Use
  Company Number: PHHY2011KR67532

PATIENT
  Sex: Male
  Weight: 60 kg

DRUGS (1)
  1. SEBIVO [Suspect]
     Dosage: UNK UKN, UNK

REACTIONS (3)
  - WEIGHT DECREASED [None]
  - MYOPATHY [None]
  - HYPOAESTHESIA [None]
